FAERS Safety Report 4421419-9 (Version None)
Quarter: 2004Q3

REPORT INFORMATION
  Report Type: 
  Country: None (occurrence: None)
  Receive Date: 20040709
  Receipt Date: 20040318
  Transmission Date: 20050211
  Serious: No
  Sender: FDA-Public Use
  Company Number: 2004S1000055

PATIENT
  Age: 63 Year
  Sex: Male
  Weight: 81.8 kg

DRUGS (8)
  1. CUBICIN [Suspect]
     Indication: OSTEOMYELITIS
     Dosage: QD, IV
     Route: 042
     Dates: start: 20040224, end: 20040318
  2. CUBICIN [Suspect]
     Indication: STAPHYLOCOCCAL INFECTION
     Dosage: QD, IV
     Route: 042
     Dates: start: 20040224, end: 20040318
  3. HUMULIN 70/30 [Concomitant]
  4. METFORMIN HCL [Concomitant]
  5. VASOTEC [Concomitant]
  6. NORVASC [Concomitant]
  7. VANCOMYCIN [Concomitant]
  8. ZYVOX [Concomitant]

REACTIONS (1)
  - EOSINOPHILIA [None]
